FAERS Safety Report 8716029 (Version 3)
Quarter: 2014Q2

REPORT INFORMATION
  Report Type: Spontaneous
  Country: US (occurrence: US)
  Receive Date: 20120809
  Receipt Date: 20140501
  Transmission Date: 20141212
  Serious: Yes (Other)
  Sender: FDA-Public Use
  Company Number: US-ROCHE-1065787

PATIENT
  Age: 19 Year
  Sex: Male
  Weight: 88.53 kg

DRUGS (3)
  1. ACCUTANE [Suspect]
     Indication: ACNE
     Route: 065
     Dates: start: 20000120, end: 20000427
  2. DIGOXIN [Concomitant]
  3. LASIX [Concomitant]

REACTIONS (8)
  - Colitis ulcerative [Unknown]
  - Inflammatory bowel disease [Unknown]
  - Depression [Unknown]
  - Stress [Not Recovered/Not Resolved]
  - Irritable bowel syndrome [Unknown]
  - Lip dry [Unknown]
  - Rash [Unknown]
  - White blood cell count decreased [Unknown]
